FAERS Safety Report 6199491-8 (Version None)
Quarter: 2009Q2

REPORT INFORMATION
  Report Type: 
  Country: None (occurrence: None)
  Receive Date: 20090522
  Receipt Date: 20090513
  Transmission Date: 20091009
  Serious: Yes (Other)
  Sender: FDA-Public Use
  Company Number: JP-AVENTIS-200911242JP

PATIENT

DRUGS (1)
  1. OPTICLIK (INSULIN INJECTION PEN) [Suspect]
     Route: 058

REACTIONS (2)
  - DEVICE MALFUNCTION [None]
  - NO ADVERSE EVENT [None]
